FAERS Safety Report 8304398-3 (Version None)
Quarter: 2012Q2

REPORT INFORMATION
  Report Type: 
  Country: None (occurrence: None)
  Receive Date: 20120423
  Receipt Date: 20120418
  Transmission Date: 20120825
  Serious: Yes (Other)
  Sender: FDA-Public Use
  Company Number: US-PFIZER INC-2012052401

PATIENT
  Sex: Female
  Weight: 46.3 kg

DRUGS (4)
  1. MEDROXYPROGESTERONE ACETATE [Suspect]
     Indication: CONTRACEPTION
     Dosage: 150 MG, EVERY 12 WEEKS
     Dates: start: 20110516
  2. MEDROXYPROGESTERONE ACETATE [Suspect]
     Dosage: 150 MG, UNK
     Dates: start: 20120119
  3. MEDROXYPROGESTERONE ACETATE [Suspect]
     Dosage: 150 MG, UNK
     Dates: start: 20110808
  4. MEDROXYPROGESTERONE ACETATE [Suspect]
     Dosage: 150 MG, UNK
     Dates: start: 20111027

REACTIONS (2)
  - UNINTENDED PREGNANCY [None]
  - DRUG INEFFECTIVE [None]
